FAERS Safety Report 7622834-2 (Version None)
Quarter: 2011Q3

REPORT INFORMATION
  Report Type: 
  Country: None (occurrence: None)
  Receive Date: 20110720
  Receipt Date: 20110708
  Transmission Date: 20111222
  Serious: Yes (Disabling)
  Sender: FDA-Public Use
  Company Number: US-AMGEN-USACT2011029851

PATIENT
  Age: 74 Year
  Sex: Female

DRUGS (11)
  1. PRILOSEC [Concomitant]
  2. DIFLUCAN [Concomitant]
  3. ALLEGRA [Concomitant]
  4. LISINOPRIL [Concomitant]
     Dosage: 10 MG, BID
  5. SENOKOT [Concomitant]
  6. DENOSUMAB [Suspect]
     Indication: OSTEOPOROSIS POSTMENOPAUSAL
     Dosage: 60 MG, Q6MO
     Route: 058
     Dates: start: 20061206, end: 20100614
  7. CHANTIX [Concomitant]
     Dosage: 5 MG, BID
  8. PERCOCET [Concomitant]
  9. SPIRIVA [Concomitant]
  10. HYDRALAZINE HCL [Concomitant]
     Dosage: 10 MG, Q6H
  11. IBUPROFEN [Concomitant]

REACTIONS (1)
  - SPINAL COMPRESSION FRACTURE [None]
